FAERS Safety Report 18875594 (Version 1)
Quarter: 2021Q1

REPORT INFORMATION
  Report Type: Report from Study
  Country: US (occurrence: US)
  Receive Date: 20210211
  Receipt Date: 20210211
  Transmission Date: 20210420
  Serious: Yes (Hospitalization)
  Sender: FDA-Public Use
  Company Number: US-ASTRAZENECA-2021A035008

PATIENT
  Age: 27242 Day
  Sex: Male

DRUGS (1)
  1. CALQUENCE [Suspect]
     Active Substance: ACALABRUTINIB
     Indication: ACUTE LYMPHOCYTIC LEUKAEMIA RECURRENT
     Route: 048

REACTIONS (3)
  - Dizziness [Unknown]
  - Cerebrovascular accident [Unknown]
  - Nausea [Unknown]

NARRATIVE: CASE EVENT DATE: 20210131
